FAERS Safety Report 9460089 (Version 1)
Quarter: 2013Q3

REPORT INFORMATION
  Report Type: Spontaneous
  Country: US (occurrence: US)
  Receive Date: 20130815
  Receipt Date: 20130815
  Transmission Date: 20140515
  Serious: Yes (Hospitalization)
  Sender: FDA-Public Use
  Company Number: PHEH2013US017001

PATIENT
  Age: 87 Year
  Sex: Female

DRUGS (5)
  1. EXELON PATCH [Suspect]
     Dosage: 4.6 MG, UNK
     Route: 062
  2. ATENOLOL [Concomitant]
     Dosage: UNK UKN, UNK
  3. KLOR-CON [Concomitant]
     Dosage: UNK UKN, UNK
  4. PAXIL//PAROXETINE HYDROCHLORIDE [Concomitant]
     Dosage: UNK UKN, UNK
  5. IBUPROFEN [Concomitant]
     Dosage: UNK UKN, UNK

REACTIONS (5)
  - Swelling face [Unknown]
  - Flushing [Unknown]
  - Erythema [Unknown]
  - Incorrect drug administration duration [Unknown]
  - Drug administration error [Unknown]
